FAERS Safety Report 11620953 (Version 2)
Quarter: 2015Q4

REPORT INFORMATION
  Report Type: Report from Study
  Country: AR (occurrence: AR)
  Receive Date: 20151012
  Receipt Date: 20151103
  Transmission Date: 20160304
  Serious: Yes (Hospitalization)
  Sender: FDA-Public Use
  Company Number: PHHY2015AR121592

PATIENT
  Age: 66 Year
  Sex: Female
  Weight: 70 kg

DRUGS (4)
  1. MYFORTIC [Suspect]
     Active Substance: MYCOPHENOLATE SODIUM
     Dosage: 720 MG, QD
     Route: 048
     Dates: start: 20150928, end: 20151014
  2. MYFORTIC [Suspect]
     Active Substance: MYCOPHENOLATE SODIUM
     Indication: RENAL TRANSPLANT
     Dosage: 1440 MG, QD
     Route: 048
     Dates: start: 20150323, end: 20150926
  3. TACROLIMUS. [Concomitant]
     Active Substance: TACROLIMUS
     Indication: PROPHYLAXIS AGAINST TRANSPLANT REJECTION
     Dosage: 5 MG, UNK
     Route: 065
     Dates: start: 20150331
  4. PREDNISONE. [Concomitant]
     Active Substance: PREDNISONE
     Indication: PROPHYLAXIS AGAINST TRANSPLANT REJECTION
     Dosage: 8 MG, UNK
     Route: 065
     Dates: start: 20150323

REACTIONS (2)
  - Diverticulitis [Recovered/Resolved]
  - Acute kidney injury [Recovered/Resolved]

NARRATIVE: CASE EVENT DATE: 20150919
